FAERS Safety Report 10029880 (Version 1)
Quarter: 2014Q1

REPORT INFORMATION
  Report Type: Spontaneous
  Country: US (occurrence: None)
  Receive Date: 20140306
  Receipt Date: 20140306
  Transmission Date: 20141002
  Serious: Yes (Other)
  Sender: FDA-Public Use
  Company Number: CA-SEPTODONT-201401695

PATIENT
  Age: 49 Year
  Sex: Female

DRUGS (3)
  1. EPINEPHRINE BITARTRATE\LIDOCAINE HYDROCHLORIDE [Suspect]
     Indication: LOCAL ANAESTHESIA
     Route: 004
     Dates: start: 20131211
  2. EPINEPHRINE BITARTRATE\LIDOCAINE HYDROCHLORIDE [Suspect]
     Indication: LOCAL ANAESTHESIA
     Route: 004
     Dates: start: 20131211
  3. TOPEX (BENZOCAINE) [Concomitant]

REACTIONS (5)
  - Trismus [None]
  - Post procedural infection [None]
  - Swelling [None]
  - Pain [None]
  - Drug ineffective [None]
